FAERS Safety Report 16407773 (Version 4)
Quarter: 2019Q3

REPORT INFORMATION
  Report Type: Spontaneous
  Country: US (occurrence: US)
  Receive Date: 20190609
  Receipt Date: 20190723
  Transmission Date: 20191004
  Serious: Yes (Other)
  Sender: FDA-Public Use
  Company Number: US-ASTRAZENECA-2018SF26890

PATIENT
  Age: 18065 Day
  Sex: Male
  Weight: 131.5 kg

DRUGS (56)
  1. DIOVAN [Concomitant]
     Active Substance: VALSARTAN
  2. ACTOPLUS MET [Concomitant]
     Active Substance: METFORMIN HYDROCHLORIDE\PIOGLITAZONE HYDROCHLORIDE
  3. QUINAPRIL. [Concomitant]
     Active Substance: QUINAPRIL
  4. CEPHALEXIN. [Concomitant]
     Active Substance: CEPHALEXIN
  5. AMLODIPINE [Concomitant]
     Active Substance: AMLODIPINE BESYLATE
     Indication: BLOOD PRESSURE MEASUREMENT
     Dates: start: 2015
  6. SULPHAMETHOXAZOLE [Concomitant]
     Active Substance: SULFAMETHOXAZOLE
     Indication: INFECTION
     Dates: start: 2018
  7. ZANTAC 150 (RANITIDINE HYDROCHLORIDE) [Concomitant]
     Active Substance: RANITIDINE HYDROCHLORIDE
     Dates: start: 2015
  8. PRILOSEC [Suspect]
     Active Substance: OMEPRAZOLE MAGNESIUM
     Indication: GASTROOESOPHAGEAL REFLUX DISEASE
     Dosage: GENERIC-20MG DAILY
     Route: 065
     Dates: start: 20151116, end: 20180228
  9. GABAPENTIN. [Concomitant]
     Active Substance: GABAPENTIN
  10. METHOCARBAMOL. [Concomitant]
     Active Substance: METHOCARBAMOL
  11. AMITRIPTYLINE [Concomitant]
     Active Substance: AMITRIPTYLINE
  12. PRISTIQ EXTENDED-RELEASE [Concomitant]
     Active Substance: DESVENLAFAXINE SUCCINATE
  13. SERTRALINE [Concomitant]
     Active Substance: SERTRALINE HYDROCHLORIDE
  14. ISOSORBIDE MONONITRATE. [Concomitant]
     Active Substance: ISOSORBIDE MONONITRATE
     Dates: start: 201706
  15. PRILOSEC [Suspect]
     Active Substance: OMEPRAZOLE MAGNESIUM
     Indication: GASTROOESOPHAGEAL REFLUX DISEASE
     Dosage: GENERIC-20MG DAILY
     Route: 065
     Dates: start: 20081029, end: 20100113
  16. PRILOSEC [Suspect]
     Active Substance: OMEPRAZOLE MAGNESIUM
     Indication: GASTROOESOPHAGEAL REFLUX DISEASE
     Route: 048
     Dates: start: 19971007, end: 20060725
  17. TERAZOSIN [Concomitant]
     Active Substance: TERAZOSIN HYDROCHLORIDE
  18. LORAZEPAM. [Concomitant]
     Active Substance: LORAZEPAM
  19. OXAPROZIN. [Concomitant]
     Active Substance: OXAPROZIN
     Indication: RHEUMATOID ARTHRITIS
     Dates: start: 2009, end: 2011
  20. NEXIUM [Suspect]
     Active Substance: ESOMEPRAZOLE MAGNESIUM
     Indication: GASTROOESOPHAGEAL REFLUX DISEASE
     Route: 048
     Dates: start: 199710, end: 201011
  21. PRILOSEC [Suspect]
     Active Substance: OMEPRAZOLE MAGNESIUM
     Indication: GASTROOESOPHAGEAL REFLUX DISEASE
     Route: 048
     Dates: start: 199710, end: 201011
  22. FLUOXETINE [Concomitant]
     Active Substance: FLUOXETINE HYDROCHLORIDE
  23. SONATA [Concomitant]
     Active Substance: ZALEPLON
  24. TRICOR [Concomitant]
     Active Substance: FENOFIBRATE
  25. CYMBALTA [Concomitant]
     Active Substance: DULOXETINE HYDROCHLORIDE
  26. VITAMIN D2 [Concomitant]
     Active Substance: ERGOCALCIFEROL
  27. HYDRALAZINE [Concomitant]
     Active Substance: HYDRALAZINE HYDROCHLORIDE
     Indication: BLOOD PRESSURE MEASUREMENT
     Dates: start: 2017
  28. NEXIUM [Suspect]
     Active Substance: ESOMEPRAZOLE MAGNESIUM
     Indication: GASTROOESOPHAGEAL REFLUX DISEASE
     Route: 048
     Dates: start: 20030711, end: 20060426
  29. PRILOSEC [Suspect]
     Active Substance: OMEPRAZOLE MAGNESIUM
     Indication: GASTROOESOPHAGEAL REFLUX DISEASE
     Dosage: GENERIC-20MG DAILY
     Route: 065
     Dates: start: 20151116, end: 20180228
  30. PRILOSEC OTC [Suspect]
     Active Substance: OMEPRAZOLE MAGNESIUM
     Indication: GASTROOESOPHAGEAL REFLUX DISEASE
     Route: 048
     Dates: start: 199710, end: 201011
  31. PHENYTOIN. [Concomitant]
     Active Substance: PHENYTOIN
  32. SULFASALAZINE. [Concomitant]
     Active Substance: SULFASALAZINE
  33. HYDROCHLOROTHIAZIDE. [Concomitant]
     Active Substance: HYDROCHLOROTHIAZIDE
  34. VIAGRA [Concomitant]
     Active Substance: SILDENAFIL CITRATE
  35. RANITIDINE. [Concomitant]
     Active Substance: RANITIDINE
  36. PRILOSEC [Suspect]
     Active Substance: OMEPRAZOLE MAGNESIUM
     Indication: GASTROOESOPHAGEAL REFLUX DISEASE
     Dosage: GENERIC-20MG DAILY
     Route: 065
     Dates: start: 20081029, end: 20100113
  37. LEVAQUIN [Concomitant]
     Active Substance: LEVOFLOXACIN
  38. BUSPIRONE [Concomitant]
     Active Substance: BUSPIRONE HYDROCHLORIDE
  39. CHANTIX [Concomitant]
     Active Substance: VARENICLINE TARTRATE
  40. ABILIFY [Concomitant]
     Active Substance: ARIPIPRAZOLE
  41. AMLODIPINE BESYLATE. [Concomitant]
     Active Substance: AMLODIPINE BESYLATE
  42. IBUPROFEN. [Concomitant]
     Active Substance: IBUPROFEN
     Indication: PAIN
     Dates: start: 201206
  43. BENADRYL [Concomitant]
     Active Substance: DIPHENHYDRAMINE HYDROCHLORIDE
     Dates: start: 201206
  44. PRILOSEC [Suspect]
     Active Substance: OMEPRAZOLE MAGNESIUM
     Indication: GASTROOESOPHAGEAL REFLUX DISEASE
     Dosage: GENERIC-20MG DAILY
     Route: 065
     Dates: start: 20110212, end: 20110316
  45. METHOTREXATE. [Concomitant]
     Active Substance: METHOTREXATE
     Indication: RHEUMATOID ARTHRITIS
     Dates: start: 2015, end: 2018
  46. DOXYCYCLINE HYCLATE. [Concomitant]
     Active Substance: DOXYCYCLINE HYCLATE
  47. LOSARTAN POTASSIUM. [Concomitant]
     Active Substance: LOSARTAN POTASSIUM
  48. METOPROLOL SUCCINATE. [Concomitant]
     Active Substance: METOPROLOL SUCCINATE
  49. ATORVASTATIN [Concomitant]
     Active Substance: ATORVASTATIN
     Indication: BLOOD CHOLESTEROL
     Dates: start: 201806
  50. PRILOSEC [Suspect]
     Active Substance: OMEPRAZOLE MAGNESIUM
     Indication: GASTROOESOPHAGEAL REFLUX DISEASE
     Dosage: GENERIC-20MG DAILY
     Route: 065
     Dates: start: 20110212, end: 20110316
  51. PRILOSEC OTC [Suspect]
     Active Substance: OMEPRAZOLE MAGNESIUM
     Indication: GASTROOESOPHAGEAL REFLUX DISEASE
     Route: 048
     Dates: start: 20070305, end: 20110212
  52. PROCTOFOAM [Concomitant]
     Active Substance: PRAMOXINE HYDROCHLORIDE
  53. HYDROCODONE-ACETAMINOPHEN [Concomitant]
     Active Substance: ACETAMINOPHEN\HYDROCODONE
  54. SEROQUEL [Concomitant]
     Active Substance: QUETIAPINE FUMARATE
  55. FOLIC ACID. [Concomitant]
     Active Substance: FOLIC ACID
  56. PROMETHAZINE [Concomitant]
     Active Substance: PROMETHAZINE HYDROCHLORIDE

REACTIONS (4)
  - Chronic kidney disease [Not Recovered/Not Resolved]
  - Acute kidney injury [Not Recovered/Not Resolved]
  - Renal failure [Unknown]
  - Renal injury [Unknown]

NARRATIVE: CASE EVENT DATE: 20100617
